FAERS Safety Report 4752856-0 (Version None)
Quarter: 2005Q3

REPORT INFORMATION
  Report Type: 
  Country: None (occurrence: None)
  Receive Date: 20050714
  Receipt Date: 20040706
  Transmission Date: 20060218
  Serious: Yes (Hospitalization)
  Sender: FDA-Public Use
  Company Number: 200415104US

PATIENT
  Age: 62 Year
  Sex: Female

DRUGS (4)
  1. TAXOTERE [Suspect]
     Indication: BREAST CANCER
     Dosage: 75 MG/M**2 CYC
     Dates: start: 20040624
  2. STEROIDS [Concomitant]
  3. ALBUTEROL [Concomitant]
  4. NEUPOGEN [Concomitant]

REACTIONS (4)
  - LUNG INFILTRATION [None]
  - PNEUMONITIS [None]
  - PYREXIA [None]
  - RESPIRATORY DISORDER [None]
